FAERS Safety Report 19306525 (Version 1)
Quarter: 2021Q2

REPORT INFORMATION
  Report Type: Spontaneous
  Country: US (occurrence: US)
  Receive Date: 20210525
  Receipt Date: 20210525
  Transmission Date: 20210717
  Serious: Yes (Life-Threatening, Hospitalization)
  Sender: FDA-Public Use
  Company Number: None

PATIENT
  Age: 55 Year
  Sex: Female
  Weight: 162 kg

DRUGS (7)
  1. VITAMIN D3 [Concomitant]
     Active Substance: CHOLECALCIFEROL
  2. VITAMIN C [Concomitant]
     Active Substance: ASCORBIC ACID
  3. CPAP [Concomitant]
     Active Substance: DEVICE
  4. MEDICAL ALERT [Concomitant]
  5. CANE [Concomitant]
  6. MOTRIN [Concomitant]
     Active Substance: IBUPROFEN
  7. CELEBREX [Suspect]
     Active Substance: CELECOXIB
     Indication: POSTOPERATIVE CARE
     Dates: start: 20200108, end: 20200115

REACTIONS (4)
  - Ear haemorrhage [None]
  - Volume blood decreased [None]
  - Epistaxis [None]
  - Eye haemorrhage [None]

NARRATIVE: CASE EVENT DATE: 20200115
